FAERS Safety Report 19221460 (Version 3)
Quarter: 2021Q3

REPORT INFORMATION
  Report Type: Spontaneous
  Country: CA (occurrence: CA)
  Receive Date: 20210506
  Receipt Date: 20210706
  Transmission Date: 20211014
  Serious: Yes (Other)
  Sender: FDA-Public Use
  Company Number: CA-PFIZER INC-2021493296

PATIENT
  Age: 61 Year
  Sex: Male
  Weight: 54.5 kg

DRUGS (5)
  1. TACROLIMUS. [Concomitant]
     Active Substance: TACROLIMUS
     Indication: IMMUNOSUPPRESSANT DRUG THERAPY
     Dosage: UNK
  2. IMIPENEM [Concomitant]
     Active Substance: IMIPENEM
     Indication: MYCOBACTERIUM CHELONAE INFECTION
     Dosage: 250 MG, 2X/DAY (FREQ:12 H;)
     Route: 042
     Dates: start: 201004, end: 201402
  3. CLARITHROMYCIN. [Concomitant]
     Active Substance: CLARITHROMYCIN
     Indication: MYCOBACTERIUM CHELONAE INFECTION
     Dosage: 500 MG, 2X/DAY
     Dates: start: 201003, end: 201402
  4. DOXYCYCLINE HYCLATE. [Suspect]
     Active Substance: DOXYCYCLINE HYCLATE
     Indication: MYCOBACTERIUM CHELONAE INFECTION
     Dosage: 100 MG, 2X/DAY (FREQ:12 H;)
     Dates: start: 201204, end: 201206
  5. MOXIFLOXACIN. [Concomitant]
     Active Substance: MOXIFLOXACIN
     Indication: MYCOBACTERIUM CHELONAE INFECTION
     Dosage: 400 MG, DAILY
     Dates: start: 201003, end: 201402

REACTIONS (1)
  - Alanine aminotransferase increased [Recovered/Resolved]

NARRATIVE: CASE EVENT DATE: 201206
